FAERS Safety Report 9726836 (Version 1)
Quarter: 2013Q4

REPORT INFORMATION
  Report Type: Spontaneous
  Country: TR (occurrence: None)
  Receive Date: 20131129
  Receipt Date: 20131129
  Transmission Date: 20140711
  Serious: Yes (Life-Threatening, Hospitalization)
  Sender: FDA-Public Use
  Company Number: 2013P1021397

PATIENT
  Age: 20 Year
  Sex: Male

DRUGS (2)
  1. METFORMIN [Suspect]
  2. DICLOFENAC SODIUM [Suspect]

REACTIONS (5)
  - Suicide attempt [None]
  - Blood lactic acid increased [None]
  - Haemodialysis [None]
  - Acidosis [None]
  - Overdose [None]
